FAERS Safety Report 25483781 (Version 3)
Quarter: 2025Q3

REPORT INFORMATION
  Report Type: Spontaneous
  Country: JP (occurrence: JP)
  Receive Date: 20250626
  Receipt Date: 20250922
  Transmission Date: 20251021
  Serious: Yes (Life-Threatening)
  Sender: SUNOVION
  Company Number: JP-SMPA-2025SPA008114

PATIENT
  Age: 46 Year
  Sex: Female

DRUGS (6)
  1. RELUGOLIX [Suspect]
     Active Substance: RELUGOLIX
     Indication: Uterine leiomyoma
     Route: 048
     Dates: start: 20250423, end: 20250426
  2. RELUGOLIX [Suspect]
     Active Substance: RELUGOLIX
     Indication: Uterine leiomyoma
  3. RELUGOLIX [Suspect]
     Active Substance: RELUGOLIX
     Indication: Anaemia
  4. ESTRADIOL VALERATE [Suspect]
     Active Substance: ESTRADIOL VALERATE
     Indication: Haemostasis
     Route: 030
     Dates: start: 20250423, end: 20250425
  5. DIENOGEST [Suspect]
     Active Substance: DIENOGEST
     Indication: Product used for unknown indication
     Route: 048
  6. FERINJECT [Concomitant]
     Active Substance: FERRIC CARBOXYMALTOSE
     Indication: Anaemia
     Dates: start: 20250425, end: 20250425

REACTIONS (1)
  - Genital haemorrhage [Recovered/Resolved]

NARRATIVE: CASE EVENT DATE: 20250426
